FAERS Safety Report 17802598 (Version 1)
Quarter: 2020Q2

REPORT INFORMATION
  Report Type: Spontaneous
  Country: US (occurrence: US)
  Receive Date: 20200519
  Receipt Date: 20200519
  Transmission Date: 20200714
  Serious: Yes (Hospitalization)
  Sender: FDA-Public Use
  Company Number: US-UNICHEM PHARMACEUTICALS (USA) INC-UCM202005-000586

PATIENT
  Age: 76 Year
  Sex: Female

DRUGS (3)
  1. METOPROLOL. [Suspect]
     Active Substance: METOPROLOL
     Indication: INTENTIONAL OVERDOSE
     Dosage: 50 MG TABLETS
  2. LOSARTAN. [Suspect]
     Active Substance: LOSARTAN
     Indication: INTENTIONAL OVERDOSE
     Dosage: 100 MG TABLETS
  3. DULOXETINE. [Suspect]
     Active Substance: DULOXETINE
     Indication: INTENTIONAL OVERDOSE
     Dosage: 60 MG TABLETS

REACTIONS (5)
  - Hypothermia [Unknown]
  - Hypotension [Unknown]
  - Depressed level of consciousness [Unknown]
  - Intentional overdose [Unknown]
  - Bradycardia [Unknown]
